FAERS Safety Report 7101584-5 (Version None)
Quarter: 2010Q4

REPORT INFORMATION
  Report Type: 
  Country: None (occurrence: None)
  Receive Date: 20101115
  Receipt Date: 20101109
  Transmission Date: 20110411
  Serious: Yes (Death)
  Sender: FDA-Public Use
  Company Number: VE-PFIZER INC-2010144974

PATIENT
  Age: 61 Year
  Sex: Male
  Weight: 78.005 kg

DRUGS (6)
  1. LIPITOR [Suspect]
     Indication: HYPERCHOLESTEROLAEMIA
     Dosage: 40 MG, 1X/DAY
     Route: 048
     Dates: start: 20100801, end: 20101018
  2. FOLIC ACID [Concomitant]
     Dosage: UNK
     Route: 048
     Dates: end: 20101018
  3. COZAAR [Concomitant]
     Indication: HYPERTENSION
     Dosage: 100 MG, 2X/DAY
     Route: 048
  4. RANITIDINE [Concomitant]
     Indication: GASTRIC DISORDER
     Dosage: UNK
     Route: 048
     Dates: end: 20101018
  5. CITRACAL [Concomitant]
     Dosage: 750 MG, 1X/DAY
     Route: 048
  6. LANTUS [Concomitant]
     Indication: DIABETES MELLITUS
     Dosage: UNK
     Route: 058
     Dates: start: 20100701, end: 20101018

REACTIONS (1)
  - MYOCARDIAL INFARCTION [None]
